FAERS Safety Report 9243062 (Version 1)
Quarter: 2013Q2

REPORT INFORMATION
  Report Type: Spontaneous
  Country: US (occurrence: US)
  Receive Date: 20130419
  Receipt Date: 20130419
  Transmission Date: 20140414
  Serious: Yes (Life-Threatening, Other)
  Sender: FDA-Public Use
  Company Number: US-MYLANLABS-2013S1005892

PATIENT
  Sex: Female
  Weight: 110.22 kg

DRUGS (4)
  1. VALSARTAN AND HYDROCHLOROTHIAZIDE TABLETS [Suspect]
     Indication: BLOOD PRESSURE INCREASED
     Route: 048
  2. XANAX [Concomitant]
  3. MECLIZINE [Concomitant]
  4. MOTRIN [Concomitant]

REACTIONS (5)
  - Blood pressure increased [Recovered/Resolved]
  - Headache [Recovered/Resolved]
  - Dizziness [Recovered/Resolved]
  - Nausea [Recovered/Resolved]
  - Malaise [Recovered/Resolved]
